FAERS Safety Report 5553071-3 (Version None)
Quarter: 2007Q4

REPORT INFORMATION
  Report Type: 
  Country: None (occurrence: None)
  Receive Date: 20071206
  Receipt Date: 20071126
  Transmission Date: 20080405
  Serious: Yes (Other)
  Sender: FDA-Public Use
  Company Number: 2007336432

PATIENT
  Age: 29 Year
  Sex: Female

DRUGS (1)
  1. NEOSPORIN [Suspect]
     Indication: OPEN WOUND
     Dosage: ONCE, TOPICAL
     Route: 062
     Dates: start: 20071104, end: 20071104

REACTIONS (4)
  - BLISTER [None]
  - CONDITION AGGRAVATED [None]
  - HYPERSENSITIVITY [None]
  - THERMAL BURN [None]
